FAERS Safety Report 11533723 (Version 1)
Quarter: 2015Q3

REPORT INFORMATION
  Report Type: Spontaneous
  Country: US (occurrence: US)
  Receive Date: 20150921
  Receipt Date: 20150921
  Transmission Date: 20151125
  Serious: No
  Sender: FDA-Public Use
  Company Number: US-009507513-1509USA010053

PATIENT
  Sex: Female

DRUGS (1)
  1. NUVARING [Suspect]
     Active Substance: ETHINYL ESTRADIOL\ETONOGESTREL
     Dosage: STRENGTH: 0.015/0.12(UNIT NOT REPORTED)
     Route: 067
     Dates: start: 2008

REACTIONS (3)
  - Device breakage [Unknown]
  - Drug dose omission [Unknown]
  - No adverse event [Unknown]
